FAERS Safety Report 8919998 (Version 1)
Quarter: 2012Q4

REPORT INFORMATION
  Report Type: 
  Country: BR (occurrence: BR)
  Receive Date: 20121121
  Receipt Date: 20121121
  Transmission Date: 20130627
  Serious: Yes (Hospitalization)
  Sender: FDA-Public Use
  Company Number: BR-BRISTOL-MYERS SQUIBB COMPANY-17131426

PATIENT
  Age: 71 Year
  Sex: Female

DRUGS (11)
  1. ONGLYZA TABS 5 MG [Suspect]
     Indication: DIABETES MELLITUS
     Route: 048
     Dates: start: 20120801
  2. GLIBENCLAMIDE [Concomitant]
     Indication: DIABETES MELLITUS
  3. METFORMIN [Concomitant]
     Indication: DIABETES MELLITUS
  4. CILOSTAZOL [Concomitant]
  5. CLOPIDOGREL BISULFATE [Concomitant]
  6. ACETYLSALICYLIC ACID [Concomitant]
     Indication: CARDIOVASCULAR DISORDER
  7. LOSARTAN [Concomitant]
  8. DIOVAN [Concomitant]
     Indication: HYPERTENSION
  9. SIMVASTATIN [Concomitant]
  10. AMITRIPTYLINE [Concomitant]
  11. CLONAZEPAM [Concomitant]
     Indication: DEPRESSION

REACTIONS (2)
  - Intracranial aneurysm [Unknown]
  - Nosocomial infection [Unknown]
